FAERS Safety Report 20451282 (Version 3)
Quarter: 2022Q1

REPORT INFORMATION
  Report Type: Spontaneous
  Country: AU (occurrence: AU)
  Receive Date: 20220209
  Receipt Date: 20220326
  Transmission Date: 20220423
  Serious: Yes (Other)
  Sender: FDA-Public Use
  Company Number: AU-BAUSCH-BL-2022-003675

PATIENT
  Age: 6 Year
  Sex: Male

DRUGS (9)
  1. DEXAMETHASONE [Suspect]
     Active Substance: DEXAMETHASONE
     Indication: Obstructive airways disorder
     Dosage: CEASED ON DAY 24 AFTER RESOLUTION OF FEVER AND EXTUBATION
     Route: 042
  2. DEXAMETHASONE [Suspect]
     Active Substance: DEXAMETHASONE
     Dosage: RE-STARTED
     Route: 042
  3. PREDNISOLONE [Suspect]
     Active Substance: PREDNISOLONE
     Indication: Obstructive airways disorder
     Dosage: ON DAY 81
     Route: 048
  4. PREDNISOLONE [Suspect]
     Active Substance: PREDNISOLONE
     Dosage: WEANED OVER 6 WEEKS
     Route: 048
  5. PREDNISOLONE [Suspect]
     Active Substance: PREDNISOLONE
     Dosage: ON DAY 135, STARTED DOSE INCREASED AGAIN
     Route: 048
  6. MEPOLIZUMAB [Concomitant]
     Active Substance: MEPOLIZUMAB
     Indication: Fungal infection
     Dosage: FROM DAY 193 TO DAY 366 (LAST DOSE)
     Route: 058
  7. TERBINAFINE [Concomitant]
     Active Substance: TERBINAFINE
     Indication: Fungal infection
     Route: 065
  8. MILTEFOSINE [Concomitant]
     Active Substance: MILTEFOSINE
     Indication: Fungal infection
     Route: 065
  9. AMPHOTERICIN B [Concomitant]
     Active Substance: AMPHOTERICIN B
     Indication: Obstructive airways disorder
     Dosage: 5-7.5MG/KG DAILY
     Route: 065

REACTIONS (1)
  - Therapy partial responder [Unknown]
